FAERS Safety Report 8909417 (Version 1)
Quarter: 2012Q4

REPORT INFORMATION
  Report Type: Spontaneous
  Country: GB (occurrence: None)
  Receive Date: 20121107
  Receipt Date: 20121107
  Transmission Date: 20130627
  Serious: Yes (Other)
  Sender: FDA-Public Use
  Company Number: AUR-APL-04655

PATIENT
  Age: 12 Year
  Sex: Male
  Weight: 30 kg

DRUGS (5)
  1. AMOXICILLIN [Suspect]
     Indication: HELICOBACTER PYLORI INFECTION
     Route: 048
     Dates: start: 20120928, end: 20121005
  2. OMEPRAZOLE (OMEPRAZOLE) [Suspect]
     Indication: DRUG USE FOR UNKNOWN INDICATION
     Route: 048
     Dates: start: 20120927
  3. CLARITHROMYCIN [Suspect]
     Indication: HELICOBACTER PYLORI INFECTION
     Dates: start: 20120928, end: 20121005
  4. CLARITHROMYCIN [Suspect]
     Indication: HELICOBACTER PYLORI INFECTION
     Route: 048
  5. DEFERASIROX [Suspect]
     Indication: DRUG USE FOR UNKNOWN INDICATION
     Route: 048
     Dates: start: 2009, end: 20121008

REACTIONS (1)
  - Pancreatitis [None]
